FAERS Safety Report 9566970 (Version 1)
Quarter: 2013Q3

REPORT INFORMATION
  Report Type: Spontaneous
  Country: US (occurrence: US)
  Receive Date: 20130930
  Receipt Date: 20130930
  Transmission Date: 20140515
  Serious: No
  Sender: FDA-Public Use
  Company Number: US-AMGEN-USASP2012061387

PATIENT
  Age: 59 Year
  Sex: Female

DRUGS (2)
  1. ENBREL [Suspect]
     Indication: RHEUMATOID ARTHRITIS
     Dosage: 50 MG, QWK
     Route: 058
     Dates: start: 200708, end: 201209
  2. METHOTREXATE [Concomitant]
     Dosage: UNK

REACTIONS (4)
  - Alopecia [Unknown]
  - Therapeutic response decreased [Unknown]
  - Arthralgia [Unknown]
  - Pain in extremity [Unknown]
